FAERS Safety Report 13899428 (Version 1)
Quarter: 2017Q3

REPORT INFORMATION
  Report Type: Spontaneous
  Country: US (occurrence: US)
  Receive Date: 20170824
  Receipt Date: 20170824
  Transmission Date: 20171127
  Serious: No
  Sender: FDA-Public Use
  Company Number: US-BAYER-2017-161645

PATIENT
  Sex: Female
  Weight: 47.62 kg

DRUGS (2)
  1. MIRALAX [Suspect]
     Active Substance: POLYETHYLENE GLYCOL 3350
     Indication: CONSTIPATION
     Dosage: 1 DF, UNK
     Route: 048
  2. MIRALAX [Suspect]
     Active Substance: POLYETHYLENE GLYCOL 3350
     Indication: GASTROINTESTINAL DISORDER

REACTIONS (4)
  - Inappropriate prescribing [Unknown]
  - Incorrect drug administration duration [Unknown]
  - Poor quality drug administered [Unknown]
  - Product taste abnormal [None]

NARRATIVE: CASE EVENT DATE: 20170817
